FAERS Safety Report 7229123-9 (Version None)
Quarter: 2011Q1

REPORT INFORMATION
  Report Type: 
  Country: None (occurrence: None)
  Receive Date: 20110117
  Receipt Date: 20110111
  Transmission Date: 20110831
  Serious: Yes (Other)
  Sender: FDA-Public Use
  Company Number: CA-AMGEN-CANSP2010006796

PATIENT

DRUGS (5)
  1. ACTONEL [Concomitant]
     Indication: OSTEOPOROSIS
     Dosage: 35 MG, QWK
     Route: 048
  2. ENBREL [Suspect]
     Indication: RHEUMATOID ARTHRITIS
     Dosage: 50 MG, QWK
     Dates: start: 20070928, end: 20101001
  3. TRADONAL [Concomitant]
     Dosage: 100 MG, UNK
     Route: 048
  4. METHOTREXATE [Concomitant]
     Dosage: 25 MG, QWK
     Route: 048
  5. PLAQUENIL [Concomitant]
     Dosage: 400 MG, UNK

REACTIONS (1)
  - VISION BLURRED [None]
